FAERS Safety Report 8878133 (Version 1)
Quarter: 2012Q4

REPORT INFORMATION
  Report Type: 
  Country: SK (occurrence: SK)
  Receive Date: 20121030
  Receipt Date: 20121030
  Transmission Date: 20130627
  Serious: Yes (Other)
  Sender: FDA-Public Use
  Company Number: SK-ROXANE LABORATORIES, INC.-2012-RO-02065RO

PATIENT
  Age: 55 Year
  Sex: Female

DRUGS (2)
  1. CITALOPRAM [Suspect]
     Indication: PSYCHIATRIC DECOMPENSATION
  2. XANAX [Suspect]
     Indication: PSYCHIATRIC DECOMPENSATION
     Dosage: 0.75 mg

REACTIONS (4)
  - Cystoid macular oedema [Recovered/Resolved]
  - Tongue disorder [Unknown]
  - Fatigue [Unknown]
  - Oedema peripheral [Recovered/Resolved]
